FAERS Safety Report 4927997-5 (Version None)
Quarter: 2006Q1

REPORT INFORMATION
  Report Type: 
  Country: None (occurrence: None)
  Receive Date: 20060127
  Receipt Date: 20051222
  Transmission Date: 20060701
  Serious: Yes (Other)
  Sender: FDA-Public Use
  Company Number: 2006000230

PATIENT
  Age: 54 Year
  Sex: Male
  Weight: 77.1115 kg

DRUGS (8)
  1. LYRICA [Suspect]
     Indication: PAIN MANAGEMENT
     Dosage: 150 MG (50MG, 3 IN 1 D), UNKNOWN
     Route: 065
     Dates: start: 20050101
  2. ULTRAM [Concomitant]
  3. ELAVIL [Concomitant]
  4. VYTORIN [Concomitant]
  5. MONTELUKAST (MONTELUKAST) [Concomitant]
  6. NASONEX [Concomitant]
  7. MUCINEX (GUAIFENESIN) [Concomitant]
  8. ALL OTHER THERAPEUTIC PRODUCTS [Concomitant]

REACTIONS (7)
  - DISTURBANCE IN ATTENTION [None]
  - DRUG INEFFECTIVE [None]
  - DRUG WITHDRAWAL SYNDROME [None]
  - DYSPEPSIA [None]
  - FEELING ABNORMAL [None]
  - MALAISE [None]
  - PAIN [None]
